FAERS Safety Report 4533163-8 (Version None)
Quarter: 2004Q4

REPORT INFORMATION
  Report Type: 
  Country: None (occurrence: None)
  Receive Date: 20041210
  Receipt Date: 20040916
  Transmission Date: 20050328
  Serious: Yes (Hospitalization)
  Sender: FDA-Public Use
  Company Number: 2004-00532

PATIENT
  Age: 74 Year
  Sex: Male
  Weight: 91.6 kg

DRUGS (4)
  1. VELCADE [Suspect]
     Indication: MANTLE CELL LYMPHOMA
     Dosage: 2.6 MG, BIW, INTRAVENOUS
     Route: 042
  2. MEPRON [Concomitant]
  3. ACYCLOVIR [Concomitant]
  4. DIFLUCAN [Concomitant]

REACTIONS (4)
  - ARTHRALGIA [None]
  - ASTHENIA [None]
  - NAUSEA [None]
  - NEUROPATHY PERIPHERAL [None]
